FAERS Safety Report 14943374 (Version 4)
Quarter: 2023Q2

REPORT INFORMATION
  Report Type: Other
  Country: US (occurrence: None)
  Receive Date: 20180528
  Receipt Date: 20230519
  Transmission Date: 20230721
  Serious: Yes (Other)
  Sender: FDA-Public Use
  Company Number: US-ROCHE-2128218

PATIENT
  Age: 70 Year
  Sex: Female

DRUGS (13)
  1. CELLCEPT [Suspect]
     Active Substance: MYCOPHENOLATE MOFETIL
     Indication: Acquired epidermolysis bullosa
     Dosage: 500 MG TABLETS
     Route: 048
  2. CELLCEPT [Suspect]
     Active Substance: MYCOPHENOLATE MOFETIL
     Indication: Pemphigoid
     Dosage: 1000 MG IN AM 500 MG IN PM?500 MG TABLETS
     Route: 048
     Dates: start: 20220509
  3. ACETAMINOPHEN [Concomitant]
     Active Substance: ACETAMINOPHEN
     Route: 048
  4. ASPIRIN [Concomitant]
     Active Substance: ASPIRIN
     Dosage: 325MG TABLET
     Route: 048
  5. ATORVASTATIN [Concomitant]
     Active Substance: ATORVASTATIN
     Dosage: 80 MG TABLET
     Route: 048
  6. CHOLECALCIFEROL [Concomitant]
     Active Substance: CHOLECALCIFEROL
     Dosage: 2000 UNITS
     Route: 048
  7. COENZYME Q10 [Concomitant]
     Active Substance: DIETARY SUPPLEMENT\UBIDECARENONE
     Route: 048
  8. DAPSONE [Concomitant]
     Active Substance: DAPSONE
     Route: 048
  9. DICLOFENAC [Concomitant]
     Active Substance: DICLOFENAC
  10. LEVOTHYROXINE [Concomitant]
     Active Substance: LEVOTHYROXINE
     Route: 048
  11. METOPROLOL SUCCINATE [Concomitant]
     Active Substance: METOPROLOL SUCCINATE
     Route: 048
  12. NYSTATIN [Concomitant]
     Active Substance: NYSTATIN
     Dosage: 100000 UNIT/ML-5ML BY MOUTH
     Route: 048
  13. OMEGA 3 [Concomitant]
     Active Substance: CAPSAICIN

REACTIONS (9)
  - Oral mucosal blistering [Recovered/Resolved]
  - Eye irritation [Recovered/Resolved]
  - Oral mucosa erosion [Unknown]
  - Oral disorder [Unknown]
  - Illness [Unknown]
  - Nausea [Unknown]
  - Vomiting [Unknown]
  - Circumstance or information capable of leading to medication error [Unknown]
  - Off label use [Unknown]
